FAERS Safety Report 7038112-9 (Version None)
Quarter: 2010Q4

REPORT INFORMATION
  Report Type: 
  Country: None (occurrence: None)
  Receive Date: 20101011
  Receipt Date: 20101004
  Transmission Date: 20110411
  Serious: Yes (Hospitalization, Other)
  Sender: FDA-Public Use
  Company Number: PHHY2010JP33455

PATIENT
  Sex: Female
  Weight: 43 kg

DRUGS (12)
  1. AFINITOR [Suspect]
     Indication: METASTATIC RENAL CELL CARCINOMA
     Dosage: 10 MG, DAILY
     Route: 048
     Dates: start: 20100421, end: 20100518
  2. AFINITOR [Suspect]
     Dosage: 5 MG/DAY
     Route: 048
     Dates: start: 20100610, end: 20100704
  3. AFINITOR [Suspect]
     Dosage: 5 MG, DAILY
     Route: 048
     Dates: start: 20100816
  4. MUCOSTA [Concomitant]
     Indication: PROPHYLAXIS
     Dosage: 300 MG, UNK
     Route: 048
     Dates: start: 20070901
  5. THYRADIN [Concomitant]
     Indication: PROPHYLAXIS
     Dosage: 50 UG, UNK
     Route: 048
     Dates: start: 20080801
  6. HYPEN [Concomitant]
     Indication: METASTATIC RENAL CELL CARCINOMA
     Dosage: 200 MG, UNK
     Route: 048
     Dates: start: 20100406
  7. BIO THREE [Concomitant]
     Dosage: UNK
     Route: 048
  8. PROTECADIN [Concomitant]
     Dosage: UNK
     Route: 048
  9. REBAMIPIDE [Concomitant]
     Dosage: UNK
     Route: 048
  10. WYPAX [Concomitant]
     Dosage: UNK
     Route: 048
  11. DUROTEP JANSSEN [Concomitant]
     Dosage: UNK
     Route: 062
  12. SODIUM ALGINATE [Concomitant]
     Dosage: 60 UL, UNK
     Route: 048
     Dates: start: 20100731

REACTIONS (7)
  - CELL MARKER INCREASED [None]
  - COUGH [None]
  - FATIGUE [None]
  - INTERSTITIAL LUNG DISEASE [None]
  - MALAISE [None]
  - PNEUMONIA STAPHYLOCOCCAL [None]
  - WHITE BLOOD CELL COUNT DECREASED [None]
